FAERS Safety Report 9253983 (Version 1)
Quarter: 2013Q2

REPORT INFORMATION
  Report Type: Spontaneous
  Country: IT (occurrence: None)
  Receive Date: 20130418
  Receipt Date: 20130418
  Transmission Date: 20140414
  Serious: Yes (Hospitalization)
  Sender: FDA-Public Use
  Company Number: AUR-APL-03045

PATIENT
  Age: 23 Year
  Sex: Male

DRUGS (1)
  1. AMOXICILLIN (AMOXICILLIN) [Suspect]
     Indication: TRACHEITIS
     Dosage: ( 1 DOSAGE FORMS, TOTAL)
     Route: 048
     Dates: start: 20130329, end: 20130329

REACTIONS (3)
  - Urticaria [None]
  - Pruritus [None]
  - Erythema [None]
